FAERS Safety Report 19249397 (Version 2)
Quarter: 2021Q3

REPORT INFORMATION
  Report Type: Report from Study
  Country: None (occurrence: US)
  Receive Date: 20210513
  Receipt Date: 20210719
  Transmission Date: 20211014
  Serious: Yes (Hospitalization)
  Sender: FDA-Public Use
  Company Number: US-ABBVIE-21K-163-3821381-00

PATIENT
  Sex: Male

DRUGS (3)
  1. IMBRUVICA [Suspect]
     Active Substance: IBRUTINIB
     Indication: CHRONIC LYMPHOCYTIC LEUKAEMIA
     Route: 048
  2. IMBRUVICA [Suspect]
     Active Substance: IBRUTINIB
     Route: 048
  3. IMBRUVICA [Suspect]
     Active Substance: IBRUTINIB
     Indication: CHRONIC LYMPHOCYTIC LEUKAEMIA
     Route: 048
     Dates: start: 202011

REACTIONS (8)
  - Hypoaesthesia [Not Recovered/Not Resolved]
  - Renal disorder [Unknown]
  - Thyroid disorder [Unknown]
  - Lymphadenopathy [Not Recovered/Not Resolved]
  - Muscle spasms [Unknown]
  - Cardiac disorder [Not Recovered/Not Resolved]
  - Pneumonia [Unknown]
  - Renal mass [Unknown]

NARRATIVE: CASE EVENT DATE: 2021
